FAERS Safety Report 11696579 (Version 2)
Quarter: 2015Q4

REPORT INFORMATION
  Report Type: Report from Study
  Country: US (occurrence: US)
  Receive Date: 20151104
  Receipt Date: 20151117
  Transmission Date: 20160304
  Serious: No
  Sender: FDA-Public Use
  Company Number: PHEH2015US022491

PATIENT
  Age: 59 Year
  Sex: Female
  Weight: 73.92 kg

DRUGS (1)
  1. GILENYA [Suspect]
     Active Substance: FINGOLIMOD HYDROCHLORIDE
     Indication: MULTIPLE SCLEROSIS
     Dosage: 0.5 MG, QD
     Route: 048
     Dates: start: 20150604

REACTIONS (2)
  - Contusion [Unknown]
  - Vomiting [Unknown]

NARRATIVE: CASE EVENT DATE: 20151103
